FAERS Safety Report 6180398-7 (Version None)
Quarter: 2009Q2

REPORT INFORMATION
  Report Type: 
  Country: None (occurrence: None)
  Receive Date: 20090504
  Receipt Date: 20090504
  Transmission Date: 20091009
  Serious: Yes (Hospitalization)
  Sender: FDA-Public Use
  Company Number: None

PATIENT
  Age: 64 Year
  Sex: Male
  Weight: 82.1011 kg

DRUGS (3)
  1. TOPROL-XL [Suspect]
     Dosage: 100MG DAILY PO
     Route: 048
  2. HYDROCHLOROTHIAZIDE [Concomitant]
  3. NIACIN [Concomitant]

REACTIONS (4)
  - ACTIVITIES OF DAILY LIVING IMPAIRED [None]
  - DYSPNOEA [None]
  - FATIGUE [None]
  - MITRAL VALVE INCOMPETENCE [None]
